FAERS Safety Report 10997988 (Version 1)
Quarter: 2015Q2

REPORT INFORMATION
  Report Type: Spontaneous
  Country: US (occurrence: US)
  Receive Date: 20150408
  Receipt Date: 20150408
  Transmission Date: 20150821
  Serious: No
  Sender: FDA-Public Use
  Company Number: US-BANPHARM-20153418

PATIENT
  Age: 55 Year
  Sex: Female
  Weight: 70.29 kg

DRUGS (2)
  1. IMITREX [Concomitant]
     Active Substance: SUMATRIPTAN\SUMATRIPTAN SUCCINATE
     Dates: start: 2000
  2. NAPROXEN SODIUM 220 MG [Suspect]
     Active Substance: NAPROXEN SODIUM
     Indication: PAIN
     Dosage: 1 DF,
     Route: 048
     Dates: start: 20150202, end: 20150202

REACTIONS (2)
  - Urine odour abnormal [Recovering/Resolving]
  - Expired product administered [Unknown]
